FAERS Safety Report 7269848-2 (Version None)
Quarter: 2010Q4

REPORT INFORMATION
  Report Type: 
  Country: None (occurrence: None)
  Receive Date: 20101130
  Receipt Date: 20091120
  Transmission Date: 20110411
  Serious: Yes (Hospitalization, Other)
  Sender: FDA-Public Use
  Company Number: 2009SP037673

PATIENT
  Age: 38 Year
  Sex: Female
  Weight: 85.7298 kg

DRUGS (3)
  1. NUVARING [Suspect]
     Indication: CONTRACEPTION
     Dosage: 1 DF; Q3W; VAG
     Route: 067
     Dates: start: 20030701, end: 20031203
  2. NUVARING [Suspect]
     Indication: CONTRACEPTION
     Dosage: 1 DF; Q3W; VAG
     Route: 067
     Dates: start: 20041101, end: 20081101
  3. DIURETIC [Concomitant]

REACTIONS (16)
  - BACK PAIN [None]
  - CYSTITIS [None]
  - DYSPNOEA [None]
  - ELECTROCARDIOGRAM ABNORMAL [None]
  - HEADACHE [None]
  - HYPERLIPIDAEMIA [None]
  - LEUKOCYTOSIS [None]
  - OVARIAN MASS [None]
  - PELVIC VENOUS THROMBOSIS [None]
  - PHARYNGITIS STREPTOCOCCAL [None]
  - ROAD TRAFFIC ACCIDENT [None]
  - TACHYCARDIA [None]
  - THROMBOCYTOSIS [None]
  - THROMBOPHLEBITIS [None]
  - VAGINAL INFECTION [None]
  - WEIGHT INCREASED [None]
